FAERS Safety Report 19675451 (Version 1)
Quarter: 2021Q3

REPORT INFORMATION
  Report Type: Spontaneous
  Country: US (occurrence: US)
  Receive Date: 20210809
  Receipt Date: 20210809
  Transmission Date: 20211014
  Serious: No
  Sender: FDA-Public Use
  Company Number: US-GLAXOSMITHKLINE-US2021167008

PATIENT
  Sex: Female

DRUGS (1)
  1. FLOVENT HFA [Suspect]
     Active Substance: FLUTICASONE PROPIONATE
     Indication: PRODUCT USED FOR UNKNOWN INDICATION
     Dosage: 2 PUFF(S), BID 110MCG
     Route: 055

REACTIONS (4)
  - Chest discomfort [Recovered/Resolved]
  - Wrong technique in product usage process [Unknown]
  - Wheezing [Recovered/Resolved]
  - Extra dose administered [Unknown]
